FAERS Safety Report 6345267-8 (Version None)
Quarter: 2009Q3

REPORT INFORMATION
  Report Type: 
  Country: None (occurrence: None)
  Receive Date: 20090909
  Receipt Date: 20070501
  Transmission Date: 20100115
  Serious: Yes (Hospitalization, Disabling, Other)
  Sender: FDA-Public Use
  Company Number: US-ASTRAZENECA-2006UW00983

PATIENT
  Age: 434 Month
  Sex: Male
  Weight: 116.1 kg

DRUGS (29)
  1. SEROQUEL [Suspect]
     Indication: BIPOLAR DISORDER
     Dosage: 25 MG - 300 MG
     Route: 048
     Dates: start: 20010626, end: 20040317
  2. SEROQUEL [Suspect]
     Indication: ATTENTION DEFICIT/HYPERACTIVITY DISORDER
     Dosage: 25 MG - 300 MG
     Route: 048
     Dates: start: 20010626, end: 20040317
  3. SEROQUEL [Suspect]
     Indication: CONVULSION
     Dosage: 25 MG - 300 MG
     Route: 048
     Dates: start: 20010626, end: 20040317
  4. SEROQUEL [Suspect]
     Dosage: 50-800 MG
     Route: 048
     Dates: start: 20010626
  5. SEROQUEL [Suspect]
     Dosage: 50-800 MG
     Route: 048
     Dates: start: 20010626
  6. SEROQUEL [Suspect]
     Dosage: 50-800 MG
     Route: 048
     Dates: start: 20010626
  7. RISPERDAL [Suspect]
     Indication: BIPOLAR DISORDER
     Dates: start: 20010326, end: 20010509
  8. RISPERDAL [Suspect]
     Indication: ATTENTION DEFICIT/HYPERACTIVITY DISORDER
     Dates: start: 20010326, end: 20010509
  9. RISPERDAL [Suspect]
     Indication: CONVULSION
     Dates: start: 20010326, end: 20010509
  10. ZYPREXA [Suspect]
     Indication: BIPOLAR DISORDER
     Dates: start: 20010509, end: 20010626
  11. ZYPREXA [Suspect]
     Indication: ATTENTION DEFICIT/HYPERACTIVITY DISORDER
     Dates: start: 20010509, end: 20010626
  12. ZYPREXA [Suspect]
     Indication: CONVULSION
     Dates: start: 20010509, end: 20010626
  13. GABITRIL [Concomitant]
     Route: 048
     Dates: start: 20040722
  14. TRILEPTAL [Concomitant]
     Dates: start: 20031001, end: 20050101
  15. TOPAMAX [Concomitant]
     Indication: CONVULSION
     Dosage: 20 MG - 200 MG
     Dates: start: 19990101, end: 20000101
  16. TOPAMAX [Concomitant]
     Dosage: 25-2000 MG
     Dates: start: 20001112
  17. PAXIL [Concomitant]
     Dates: start: 20050101
  18. KLONOPIN [Concomitant]
     Dates: start: 20040101
  19. ZIAC [Concomitant]
     Indication: BLOOD PRESSURE
     Dosage: 2.5/6.25-10 MG
     Dates: start: 20000720
  20. CELEXA [Concomitant]
     Dates: start: 20010509
  21. CELECOXIB [Concomitant]
     Indication: BACK PAIN
     Dates: start: 20000720
  22. LIPITOR [Concomitant]
     Route: 048
     Dates: start: 20040722
  23. NEURONTIN [Concomitant]
     Dates: start: 20030930
  24. NEXIUM [Concomitant]
     Dates: start: 20010901
  25. PRAVACHOL [Concomitant]
     Dates: start: 20011002
  26. IMDUR SR [Concomitant]
     Dates: start: 20011002
  27. PLAVIX [Concomitant]
     Dates: start: 20011002
  28. SOMA [Concomitant]
     Dates: start: 20011002
  29. AMITRIPTYLINE [Concomitant]
     Dates: start: 20040520

REACTIONS (13)
  - BLOOD TRIGLYCERIDES INCREASED [None]
  - CARDIAC DISORDER [None]
  - CONGESTIVE CARDIOMYOPATHY [None]
  - DIABETES MELLITUS [None]
  - DIABETES MELLITUS INADEQUATE CONTROL [None]
  - DIABETIC EYE DISEASE [None]
  - GASTRIC BYPASS [None]
  - HYPERGLYCAEMIA [None]
  - OBESITY [None]
  - TYPE 1 DIABETES MELLITUS [None]
  - TYPE 2 DIABETES MELLITUS [None]
  - VISUAL ACUITY REDUCED [None]
  - WEIGHT INCREASED [None]
